FAERS Safety Report 13903386 (Version 3)
Quarter: 2017Q3

REPORT INFORMATION
  Report Type: Spontaneous
  Country: US (occurrence: US)
  Receive Date: 20170824
  Receipt Date: 20170906
  Transmission Date: 20171127
  Serious: Yes (Other)
  Sender: FDA-Public Use
  Company Number: US-PFIZER INC-2017361620

PATIENT
  Age: 88 Year
  Sex: Female
  Weight: 68.27 kg

DRUGS (1)
  1. IBRANCE [Suspect]
     Active Substance: PALBOCICLIB
     Indication: BREAST CANCER METASTATIC
     Dosage: 75 MG, CYCLIC (D-1-21 EVERY 28 DAYS/DAYS1-21 EVERY 28 DAYS)
     Route: 048
     Dates: start: 20170805, end: 2017

REACTIONS (3)
  - Haemoglobin decreased [Unknown]
  - Insomnia [Unknown]
  - Asthenia [Unknown]

NARRATIVE: CASE EVENT DATE: 2017
